FAERS Safety Report 23315372 (Version 1)
Quarter: 2023Q4

REPORT INFORMATION
  Report Type: Spontaneous
  Country: US (occurrence: None)
  Receive Date: 20231218
  Receipt Date: 20231218
  Transmission Date: 20240110
  Serious: No
  Sender: FDA-Public Use
  Company Number: None

PATIENT

DRUGS (2)
  1. ADENOSINE [Suspect]
     Active Substance: ADENOSINE
  2. AMIODARONE [Suspect]
     Active Substance: AMIODARONE

REACTIONS (3)
  - Product packaging confusion [None]
  - Product name confusion [None]
  - Circumstance or information capable of leading to medication error [None]
